FAERS Safety Report 9927431 (Version 1)
Quarter: 2014Q1

REPORT INFORMATION
  Report Type: Report from Study
  Country: US (occurrence: US)
  Receive Date: 20140226
  Receipt Date: 20140226
  Transmission Date: 20141002
  Serious: Yes (Other)
  Sender: FDA-Public Use
  Company Number: US-ROCHE-1342901

PATIENT
  Sex: Female

DRUGS (9)
  1. LUCENTIS [Suspect]
     Indication: DIABETIC RETINAL OEDEMA
     Dosage: OD
     Route: 050
  2. LUCENTIS [Suspect]
     Indication: DIABETIC RETINOPATHY
     Dosage: OS
     Route: 050
  3. LUCENTIS [Suspect]
     Route: 050
  4. AVASTIN [Suspect]
     Indication: PRODUCT USED FOR UNKNOWN INDICATION
     Route: 065
  5. DUREZOL [Concomitant]
     Dosage: QAM OS
     Route: 065
  6. VIGAMOX [Concomitant]
     Dosage: POST INJ
     Route: 065
  7. SYSTANE [Concomitant]
     Dosage: OU PRN
     Route: 065
  8. BROMDAY [Concomitant]
     Dosage: OS QAM
     Route: 065
  9. KENALOG (UNITED STATES) [Concomitant]

REACTIONS (19)
  - Eye irritation [Unknown]
  - Eye pruritus [Unknown]
  - Hypoaesthesia [Unknown]
  - Lacrimation increased [Unknown]
  - Photopsia [Unknown]
  - Vitreous floaters [Unknown]
  - Visual acuity reduced [Unknown]
  - Fibrosis [Unknown]
  - Procedural pain [Unknown]
  - Pain of skin [Unknown]
  - Neck pain [Unknown]
  - Eye pain [Unknown]
  - Disease progression [Unknown]
  - Red blood cell sedimentation rate increased [Unknown]
  - Vitreous detachment [Unknown]
  - Cutis laxa [Unknown]
  - Headache [Unknown]
  - Overdose [Unknown]
  - Off label use [Unknown]
